FAERS Safety Report 15979994 (Version 1)
Quarter: 2019Q1

REPORT INFORMATION
  Report Type: Spontaneous
  Country: GB (occurrence: GB)
  Receive Date: 20190219
  Receipt Date: 20190219
  Transmission Date: 20190418
  Serious: Yes (Death, Other)
  Sender: FDA-Public Use
  Company Number: GB-ACCORD-107720

PATIENT
  Age: 78 Year
  Sex: Male
  Weight: 63 kg

DRUGS (10)
  1. SIMVASTATIN. [Concomitant]
     Active Substance: SIMVASTATIN
     Dosage: AT NIGHT.
     Dates: start: 20180327
  2. SPIRIVA [Concomitant]
     Active Substance: TIOTROPIUM BROMIDE MONOHYDRATE
     Route: 055
     Dates: start: 20160614
  3. IRON [Concomitant]
     Active Substance: IRON
     Dates: start: 20180622
  4. BISOPROLOL [Concomitant]
     Active Substance: BISOPROLOL
     Dosage: AT 8AM
     Dates: start: 20180327
  5. CLOPIDOGREL [Suspect]
     Active Substance: CLOPIDOGREL BISULFATE
     Indication: MYOCARDIAL INFARCTION
     Dates: start: 20180327
  6. GLYCERYL TRINITRATE [Concomitant]
     Active Substance: NITROGLYCERIN
     Indication: ANGINA PECTORIS
     Dosage: PUFF
     Dates: start: 20180621
  7. FLUTICASONE. [Concomitant]
     Active Substance: FLUTICASONE
     Route: 055
     Dates: start: 20160614
  8. CANDESARTAN. [Concomitant]
     Active Substance: CANDESARTAN
     Dates: start: 20180327
  9. APIXABAN [Concomitant]
     Active Substance: APIXABAN
     Dosage: AT 8AM AND 6PM
     Dates: start: 20180327
  10. AMOXICILLIN. [Concomitant]
     Active Substance: AMOXICILLIN
     Dosage: (ANTIBIOTIC)
     Dates: start: 20180622

REACTIONS (1)
  - Gastrointestinal haemorrhage [Fatal]

NARRATIVE: CASE EVENT DATE: 20180626
